FAERS Safety Report 19894339 (Version 1)
Quarter: 2021Q3

REPORT INFORMATION
  Report Type: Spontaneous
  Country: FR (occurrence: FR)
  Receive Date: 20210929
  Receipt Date: 20210929
  Transmission Date: 20211014
  Serious: Yes (Hospitalization)
  Sender: FDA-Public Use
  Company Number: NVSC2021FR219781

PATIENT
  Age: 18 Year
  Sex: Female

DRUGS (2)
  1. AMOXICILLINE [Suspect]
     Active Substance: AMOXICILLIN
     Indication: VAGINAL INFECTION
     Dosage: 2 G, QD (1G X 2 PAR JOUR)
     Route: 048
     Dates: start: 20210910, end: 20210912
  2. SECNIDAZOLE [Suspect]
     Active Substance: SECNIDAZOLE
     Indication: VAGINAL INFECTION
     Dosage: 1 DF, (TOTAL)
     Route: 048
     Dates: start: 20210911, end: 20210911

REACTIONS (3)
  - Hepatic cytolysis [Recovering/Resolving]
  - Vomiting [Recovered/Resolved]
  - Abdominal pain [Recovered/Resolved]

NARRATIVE: CASE EVENT DATE: 20210911
